FAERS Safety Report 10314869 (Version 1)
Quarter: 2014Q3

REPORT INFORMATION
  Report Type: Report from Study
  Country: US (occurrence: JP)
  Receive Date: 20140718
  Receipt Date: 20140718
  Transmission Date: 20150326
  Serious: Yes (Other)
  Sender: FDA-Public Use
  Company Number: US-CELGENEUS-087-50794-14072060

PATIENT
  Age: 71 Year
  Sex: Female

DRUGS (4)
  1. VIDAZA [Suspect]
     Active Substance: AZACITIDINE
     Indication: PRODUCT USED FOR UNKNOWN INDICATION
     Dosage: 67.3 MILLIGRAM/SQ. METER
     Route: 065
     Dates: start: 20120220, end: 20120224
  2. VIDAZA [Suspect]
     Active Substance: AZACITIDINE
     Dosage: 67.3 MILLIGRAM/SQ. METER
     Route: 065
     Dates: start: 20120507, end: 20120511
  3. VIDAZA [Suspect]
     Active Substance: AZACITIDINE
     Dosage: 67.3 MILLIGRAM/SQ. METER
     Route: 065
     Dates: start: 20120402, end: 20120406
  4. VIDAZA [Suspect]
     Active Substance: AZACITIDINE
     Dosage: 67.3 MILLIGRAM/SQ. METER
     Route: 065
     Dates: start: 20120611, end: 20120615

REACTIONS (1)
  - Diabetes mellitus [Not Recovered/Not Resolved]

NARRATIVE: CASE EVENT DATE: 20120511
